FAERS Safety Report 22046400 (Version 1)
Quarter: 2023Q1

REPORT INFORMATION
  Report Type: Spontaneous
  Country: US (occurrence: US)
  Receive Date: 20230228
  Receipt Date: 20230228
  Transmission Date: 20230417
  Serious: No
  Sender: FDA-Public Use
  Company Number: US-INSUD PHARMA-2302US00965

PATIENT

DRUGS (2)
  1. SLYND [Suspect]
     Active Substance: DROSPIRENONE
     Indication: Product used for unknown indication
     Dosage: UNK
     Route: 048
     Dates: start: 20230209
  2. SLYND [Suspect]
     Active Substance: DROSPIRENONE
     Dosage: UNK
     Route: 048
     Dates: start: 20230112, end: 20230208

REACTIONS (4)
  - Menstruation delayed [Not Recovered/Not Resolved]
  - Dysmenorrhoea [Unknown]
  - Acne [Unknown]
  - Intermenstrual bleeding [Recovered/Resolved]

NARRATIVE: CASE EVENT DATE: 20230118
